FAERS Safety Report 13089210 (Version 2)
Quarter: 2017Q1

REPORT INFORMATION
  Report Type: Report from Study
  Country: US (occurrence: US)
  Receive Date: 20170105
  Receipt Date: 20170210
  Transmission Date: 20170428
  Serious: Yes (Other)
  Sender: FDA-Public Use
  Company Number: US-UCBSA-2016012324

PATIENT
  Sex: Male

DRUGS (5)
  1. KEPPRA XR [Suspect]
     Active Substance: LEVETIRACETAM
     Dosage: 3750 MG
  2. LACOSAMIDE. [Suspect]
     Active Substance: LACOSAMIDE
     Dosage: 700 MG
  3. KEPPRA XR [Suspect]
     Active Substance: LEVETIRACETAM
     Indication: PRODUCT USED FOR UNKNOWN INDICATION
     Dosage: 3000 MG DAILY DOSE
  4. LACOSAMIDE. [Suspect]
     Active Substance: LACOSAMIDE
     Indication: PRODUCT USED FOR UNKNOWN INDICATION
     Dosage: 800 MG DAILY DOSE
  5. KEPPRA XR [Suspect]
     Active Substance: LEVETIRACETAM
     Dosage: 2250 MG

REACTIONS (5)
  - Dry skin [Unknown]
  - Anger [Unknown]
  - Seizure [Not Recovered/Not Resolved]
  - Brain operation [Unknown]
  - Dry mouth [Unknown]
